FAERS Safety Report 20210210 (Version 2)
Quarter: 2022Q2

REPORT INFORMATION
  Report Type: Spontaneous
  Country: RU (occurrence: RU)
  Receive Date: 20211221
  Receipt Date: 20220422
  Transmission Date: 20220721
  Serious: Yes (Hospitalization)
  Sender: FDA-Public Use
  Company Number: RU-LUPIN PHARMACEUTICALS INC.-2021-25114

PATIENT
  Age: 7 Month
  Sex: Female
  Weight: 8.9 kg

DRUGS (6)
  1. RIFAMPIN [Suspect]
     Active Substance: RIFAMPIN
     Indication: Lymph node tuberculosis
     Dosage: UNK
     Route: 065
  2. AMIKACIN [Suspect]
     Active Substance: AMIKACIN
     Indication: Lymph node tuberculosis
     Dosage: UNK
     Route: 065
  3. ISONIAZID [Suspect]
     Active Substance: ISONIAZID
     Indication: Lymph node tuberculosis
     Dosage: UNK
     Route: 065
  4. HBVAXPRO [Concomitant]
     Active Substance: HEPATITIS B VIRUS VACCINE
     Indication: Hepatitis immunisation
     Dosage: UNK
     Route: 065
  5. BCG VACCINE [Concomitant]
     Active Substance: BCG VACCINE
     Indication: Tuberculosis immunisation
     Dosage: UNK, 0.025 MG OF BCG MICROBIAL CELLS IN ONE DOSE
     Route: 065
  6. AZITHROMYCIN ANHYDROUS [Concomitant]
     Active Substance: AZITHROMYCIN ANHYDROUS
     Indication: Antibiotic therapy
     Dosage: UNK
     Route: 065

REACTIONS (2)
  - Fistula [Recovered/Resolved]
  - Drug ineffective [Unknown]
